FAERS Safety Report 21929753 (Version 1)
Quarter: 2023Q1

REPORT INFORMATION
  Report Type: Spontaneous
  Country: FR (occurrence: FR)
  Receive Date: 20230131
  Receipt Date: 20230131
  Transmission Date: 20230418
  Serious: Yes (Hospitalization, Other)
  Sender: FDA-Public Use
  Company Number: None

PATIENT
  Age: 74 Year
  Sex: Female
  Weight: 61.2 kg

DRUGS (3)
  1. ELIQUIS [Interacting]
     Active Substance: APIXABAN
     Indication: Pulmonary embolism
     Dosage: 5MG 1-0-1
     Route: 048
     Dates: start: 202209, end: 20221204
  2. TAFINLAR [Interacting]
     Active Substance: DABRAFENIB MESYLATE
     Indication: Bronchial carcinoma
     Dosage: 75MG
     Route: 048
     Dates: start: 202206
  3. MEKINIST [Suspect]
     Active Substance: TRAMETINIB DIMETHYL SULFOXIDE
     Indication: Bronchial carcinoma
     Dosage: 2MG
     Route: 048
     Dates: start: 202206

REACTIONS (2)
  - Embolic stroke [Recovering/Resolving]
  - Drug interaction [Recovering/Resolving]

NARRATIVE: CASE EVENT DATE: 20220901
